FAERS Safety Report 7680255-0 (Version None)
Quarter: 2011Q3

REPORT INFORMATION
  Report Type: 
  Country: None (occurrence: None)
  Receive Date: 20110812
  Receipt Date: 20110809
  Transmission Date: 20111222
  Serious: Yes (Hospitalization)
  Sender: FDA-Public Use
  Company Number: JP-SANOFI-AVENTIS-2011SA051091

PATIENT
  Age: 61 Year
  Sex: Female

DRUGS (6)
  1. OXALIPLATIN [Suspect]
     Route: 041
     Dates: end: 20110722
  2. DEXAMETHASONE SODIUM PHOSPHATE [Concomitant]
     Indication: PREMEDICATION
     Route: 041
     Dates: start: 20100226, end: 20110722
  3. XELODA [Concomitant]
     Indication: LARGE INTESTINE CARCINOMA
     Route: 048
     Dates: start: 20110226
  4. KYTRIL [Concomitant]
     Indication: PREMEDICATION
     Route: 041
     Dates: start: 20100226, end: 20110722
  5. OXALIPLATIN [Suspect]
     Indication: LARGE INTESTINE CARCINOMA
     Route: 041
     Dates: start: 20100226
  6. AVASTIN [Suspect]
     Indication: LARGE INTESTINE CARCINOMA
     Route: 041
     Dates: start: 20100226, end: 20110722

REACTIONS (1)
  - HYPERTENSIVE ENCEPHALOPATHY [None]
